FAERS Safety Report 4782342-3 (Version None)
Quarter: 2005Q3

REPORT INFORMATION
  Report Type: 
  Country: None (occurrence: None)
  Receive Date: 20050914
  Receipt Date: 20050509
  Transmission Date: 20060218
  Serious: Yes (Hospitalization)
  Sender: FDA-Public Use
  Company Number: 163-20785-05050160

PATIENT
  Age: 48 Year
  Sex: Female

DRUGS (7)
  1. THALOMID [Suspect]
     Indication: MULTIPLE MYELOMA
     Dosage: 200 MG, ORAL
     Route: 048
     Dates: start: 20050307, end: 20050310
  2. VELCADE [Suspect]
     Indication: MULTIPLE MYELOMA
     Dosage: 1.7 MG, ORAL
     Route: 048
     Dates: start: 20050307, end: 20050310
  3. ADRIAMYCIN PFS [Suspect]
     Indication: MULTIPLE MYELOMA
     Dosage: 13 MG
     Dates: start: 20050307, end: 20050310
  4. CISPLATIN [Suspect]
     Indication: MULTIPLE MYELOMA
     Dosage: 13 MG
     Dates: start: 20050307, end: 20050310
  5. DEXAMETHASONE [Suspect]
     Indication: MULTIPLE MYELOMA
     Dosage: 40 MG
     Dates: start: 20050307, end: 20050310
  6. CYCLOPHOSPHAMIDE [Suspect]
     Indication: MULTIPLE MYELOMA
     Dosage: 513 MG
     Dates: start: 20050307, end: 20050310
  7. ETOPOSIDE [Suspect]
     Indication: MULTIPLE MYELOMA
     Dosage: 51 MG
     Dates: start: 20050307, end: 20050310

REACTIONS (1)
  - PNEUMONIA [None]
